FAERS Safety Report 23899663 (Version 1)
Quarter: 2024Q2

REPORT INFORMATION
  Report Type: Spontaneous
  Country: US (occurrence: None)
  Receive Date: 20240526
  Receipt Date: 20240526
  Transmission Date: 20240715
  Serious: No
  Sender: FDA-Public Use
  Company Number: US-ROCHE-3498762

PATIENT
  Age: 74 Year
  Sex: Female

DRUGS (7)
  1. ACTEMRA [Suspect]
     Active Substance: TOCILIZUMAB
     Indication: Uveitis
     Dosage: ACTPEN AUTO INJECTOR
     Route: 058
     Dates: start: 20240124
  2. ACTEMRA [Suspect]
     Active Substance: TOCILIZUMAB
  3. RITUXAN [Suspect]
     Active Substance: RITUXIMAB
     Indication: Uveitis
     Dosage: 2 INFUSIONS
     Route: 042
     Dates: start: 2023, end: 202311
  4. OZURDEX [Concomitant]
     Active Substance: DEXAMETHASONE
  5. PREDNISONE [Concomitant]
     Active Substance: PREDNISONE
  6. TIMOLOL [Concomitant]
     Active Substance: TIMOLOL
  7. HUMIRA [Concomitant]
     Active Substance: ADALIMUMAB

REACTIONS (7)
  - Off label use [Unknown]
  - Wrong technique in product usage process [Unknown]
  - Product quality issue [Unknown]
  - Device malfunction [Unknown]
  - Visual impairment [Not Recovered/Not Resolved]
  - Product dose omission issue [Unknown]
  - Intentional product misuse [Unknown]

NARRATIVE: CASE EVENT DATE: 20230101
